FAERS Safety Report 8831941 (Version 2)
Quarter: 2012Q4

REPORT INFORMATION
  Report Type: 
  Country: US (occurrence: IE)
  Receive Date: 20121009
  Receipt Date: 20121220
  Transmission Date: 20130627
  Serious: Yes (Death)
  Sender: FDA-Public Use
  Company Number: US-PFIZER INC-2012245379

PATIENT
  Age: 77 Year
  Sex: Male
  Weight: 92.06 kg

DRUGS (10)
  1. SERTRALINE HCL [Suspect]
     Indication: PSYCHOTIC DEPRESSION
     Dosage: 150 mg, 1x/day
     Dates: start: 20120113
  2. OLANZAPINE [Suspect]
     Indication: PSYCHOTIC DEPRESSION
     Dosage: 5-15 mg; daily (Acute phase)
     Dates: start: 20120113, end: 20120411
  3. BLINDED THERAPY [Suspect]
     Indication: PSYCHOTIC DEPRESSION
     Dosage: Olanzapine;placebo; once daily
     Dates: start: 20120412
  4. ATENOLOL [Concomitant]
     Indication: HYPERTENSION
     Dosage: 100 mg, daily
     Route: 048
     Dates: start: 19970616
  5. ENALAPRIL [Concomitant]
     Indication: HYPERTENSION
     Dosage: 10 mg, daily
     Route: 048
     Dates: start: 19970616
  6. HYDROCHLOROTHIAZIDE [Concomitant]
     Indication: HYPERTENSION
     Dosage: 25 mg, daily
     Route: 048
     Dates: start: 19970616
  7. POTASSIUM CHLORIDE [Concomitant]
     Indication: ROUTINE HEALTH MAINTENANCE
     Dosage: 20 mEq, daily
     Route: 048
  8. VITAMIN B12 [Concomitant]
     Indication: ROUTINE HEALTH MAINTENANCE
     Dosage: 1000 ug, daily
     Route: 048
  9. VITAMIN D [Concomitant]
     Indication: ROUTINE HEALTH MAINTENANCE
     Dosage: 2000 IU, daily
     Route: 048
  10. REMERON [Concomitant]
     Dosage: UNK; at bedtime

REACTIONS (4)
  - Haemorrhage [Fatal]
  - Cardiac tamponade [Fatal]
  - Aortic rupture [Fatal]
  - Cardiomegaly [Fatal]
